FAERS Safety Report 25368764 (Version 2)
Quarter: 2025Q2

REPORT INFORMATION
  Report Type: Spontaneous
  Country: US (occurrence: US)
  Receive Date: 20250528
  Receipt Date: 20250603
  Transmission Date: 20250716
  Serious: Yes (Other)
  Sender: PFIZER
  Company Number: US-PFIZER INC-PV202400032049

PATIENT
  Age: 70 Year
  Sex: Female
  Weight: 67.8 kg

DRUGS (1)
  1. BRAFTOVI [Suspect]
     Active Substance: ENCORAFENIB
     Indication: Colon cancer metastatic
     Dosage: 300 MG ONCE DAILY FOR 30 DAYS (MAY TAKE WITH OR WITHOUT FOOD)
     Route: 048
     Dates: end: 2024

REACTIONS (3)
  - Colon cancer metastatic [Unknown]
  - Malignant neoplasm progression [Unknown]
  - Off label use [Unknown]
